FAERS Safety Report 7989418-8 (Version None)
Quarter: 2011Q4

REPORT INFORMATION
  Report Type: 
  Country: None (occurrence: None)
  Receive Date: 20111215
  Receipt Date: 20111206
  Transmission Date: 20120403
  Serious: Yes (Hospitalization)
  Sender: FDA-Public Use
  Company Number: 11-778

PATIENT
  Age: 58 Year
  Sex: Male
  Weight: 96 kg

DRUGS (1)
  1. ALEVE [Suspect]
     Indication: PAIN
     Route: 048
     Dates: start: 20111119

REACTIONS (7)
  - DECREASED APPETITE [None]
  - RETCHING [None]
  - STRESS [None]
  - INCORRECT DOSE ADMINISTERED [None]
  - VOMITING [None]
  - RENAL FAILURE ACUTE [None]
  - WEIGHT DECREASED [None]
